FAERS Safety Report 8880512 (Version 1)
Quarter: 2012Q4

REPORT INFORMATION
  Report Type: 
  Country: FR (occurrence: FR)
  Receive Date: 20121031
  Receipt Date: 20121031
  Transmission Date: 20130627
  Serious: Yes (Hospitalization)
  Sender: FDA-Public Use
  Company Number: FR-ASTRAZENECA-2012SE82091

PATIENT
  Age: 649 Day
  Sex: Female

DRUGS (6)
  1. LIDOCAINE\PRILOCAINE [Suspect]
     Indication: PROPHYLAXIS
     Route: 062
     Dates: start: 20090720, end: 20090720
  2. UNSPECIFIED INGREDIENT [Suspect]
     Indication: IMMUNISATION
     Route: 058
     Dates: start: 20080116, end: 20080116
  3. UNSPECIFIED INGREDIENT [Suspect]
     Indication: IMMUNISATION
     Route: 058
     Dates: start: 20080225, end: 20080225
  4. UNSPECIFIED INGREDIENT [Suspect]
     Indication: IMMUNISATION
     Route: 058
     Dates: start: 20080409, end: 20080409
  5. UNSPECIFIED INGREDIENT [Suspect]
     Indication: IMMUNISATION
     Route: 058
     Dates: start: 20090420, end: 20090420
  6. UNSPECIFIED INGREDIENT [Suspect]
     Indication: IMMUNISATION
     Route: 058
     Dates: start: 20090720, end: 20090720

REACTIONS (2)
  - Eczema [Not Recovered/Not Resolved]
  - Inflammation [Not Recovered/Not Resolved]
